FAERS Safety Report 6348566-9 (Version None)
Quarter: 2009Q3

REPORT INFORMATION
  Report Type: 
  Country: None (occurrence: None)
  Receive Date: 20090911
  Receipt Date: 20090902
  Transmission Date: 20100115
  Serious: Yes (Other)
  Sender: FDA-Public Use
  Company Number: US-JNJFOC-20090900944

PATIENT
  Age: 23 Year
  Sex: Male

DRUGS (2)
  1. SODIUM PHOSPHATE [Suspect]
     Indication: BOWEL PREPARATION
     Route: 048
  2. PHOSPHATE ENEMA [Suspect]
     Indication: BOWEL PREPARATION
     Route: 065

REACTIONS (3)
  - HYPERPHOSPHATAEMIA [None]
  - HYPOCALCAEMIA [None]
  - HYPOMAGNESAEMIA [None]
